FAERS Safety Report 21363387 (Version 1)
Quarter: 2022Q3

REPORT INFORMATION
  Report Type: Spontaneous
  Country: DK (occurrence: DK)
  Receive Date: 20220922
  Receipt Date: 20220922
  Transmission Date: 20221027
  Serious: Yes (Death)
  Sender: FDA-Public Use
  Company Number: None

PATIENT
  Age: 76 Year
  Sex: Male

DRUGS (4)
  1. ALTEPLASE [Suspect]
     Active Substance: ALTEPLASE
     Indication: Transient ischaemic attack
     Dosage: STRENGTH AND DOSE: ?UNKNOWN POWDER AND SOLVENT FOR SOLUTION FOR INJECTION/INFUSION
     Route: 042
     Dates: start: 20200128, end: 20200128
  2. ENALAPRIL [Concomitant]
     Active Substance: ENALAPRIL
  3. METFORMIN [Concomitant]
     Active Substance: METFORMIN HYDROCHLORIDE
  4. SIMVASTATIN [Concomitant]
     Active Substance: SIMVASTATIN

REACTIONS (9)
  - Subarachnoid haemorrhage [Fatal]
  - Oedema [Fatal]
  - Cerebral mass effect [Fatal]
  - Hemiparesis [Fatal]
  - Eye movement disorder [Fatal]
  - Altered state of consciousness [Fatal]
  - Facial paresis [Fatal]
  - Haemorrhage intracranial [Fatal]
  - Pyrexia [Fatal]

NARRATIVE: CASE EVENT DATE: 20200128
